FAERS Safety Report 6184451-3 (Version None)
Quarter: 2009Q2

REPORT INFORMATION
  Report Type: 
  Country: None (occurrence: None)
  Receive Date: 20090508
  Receipt Date: 20090504
  Transmission Date: 20091009
  Serious: Yes (Death, Disabling)
  Sender: FDA-Public Use
  Company Number: SK-CELGENEUS-THASK200700297

PATIENT
  Sex: Female

DRUGS (10)
  1. THALIDOMIDE [Suspect]
     Indication: MULTIPLE MYELOMA
     Route: 048
     Dates: start: 20070718
  2. BISOPROLOL FUMARATE [Concomitant]
     Indication: HYPERTENSION
     Route: 048
  3. TRITACE [Concomitant]
     Indication: HYPERTENSION
     Route: 048
  4. VESSEL DUE [Concomitant]
     Route: 048
  5. PREDUCTAL [Concomitant]
     Route: 048
  6. ZOMETA [Concomitant]
     Indication: OSTEOPOROSIS PROPHYLAXIS
     Route: 042
  7. EPREX [Concomitant]
     Indication: ANAEMIA
     Route: 058
  8. SEVEREDOL [Concomitant]
     Indication: ANALGESIC THERAPY
     Route: 048
  9. PALLADONE [Concomitant]
     Indication: ANALGESIC THERAPY
     Route: 048
  10. FRAXIPARIN [Concomitant]
     Route: 058
     Dates: start: 20070718

REACTIONS (7)
  - ANOREXIA [None]
  - ASTHENIA [None]
  - BACK PAIN [None]
  - DISEASE PROGRESSION [None]
  - PARESIS [None]
  - SOMNOLENCE [None]
  - SOPOR [None]
